FAERS Safety Report 22535450 (Version 1)
Quarter: 2023Q2

REPORT INFORMATION
  Report Type: Spontaneous
  Country: US (occurrence: None)
  Receive Date: 20230606
  Receipt Date: 20230606
  Transmission Date: 20230721
  Serious: No
  Sender: FDA-Public Use
  Company Number: None

PATIENT
  Sex: Female

DRUGS (7)
  1. IBRANCE [Suspect]
     Active Substance: PALBOCICLIB
     Indication: Breast cancer female
     Dosage: 1T QD PO
     Route: 048
     Dates: start: 202107
  2. CALCIUM [Concomitant]
  3. VITAMIN D3 [Concomitant]
     Active Substance: CHOLECALCIFEROL
  4. XGEVA [Concomitant]
     Active Substance: DENOSUMAB
  5. FASLODEX [Concomitant]
     Active Substance: FULVESTRANT
  6. ANASTROZOLE [Concomitant]
     Active Substance: ANASTROZOLE
  7. ACETAMINOPHEN\HYDROCODONE [Concomitant]
     Active Substance: ACETAMINOPHEN\HYDROCODONE

REACTIONS (1)
  - COVID-19 [None]
